FAERS Safety Report 5717980-4 (Version None)
Quarter: 2008Q2

REPORT INFORMATION
  Report Type: 
  Country: None (occurrence: None)
  Receive Date: 20080425
  Receipt Date: 20080418
  Transmission Date: 20081010
  Serious: Yes (Death, Hospitalization)
  Sender: FDA-Public Use
  Company Number: A0724883A

PATIENT
  Age: 84 Year
  Sex: Female

DRUGS (4)
  1. AVANDIA [Suspect]
     Dosage: 4MG PER DAY
     Route: 048
     Dates: start: 20050201, end: 20080218
  2. LASIX [Concomitant]
  3. ALENDRONATE SODIUM [Concomitant]
  4. AMLODIPINE [Concomitant]

REACTIONS (3)
  - LIVER DISORDER [None]
  - MALAISE [None]
  - SKIN EXFOLIATION [None]
